FAERS Safety Report 21413576 (Version 6)
Quarter: 2023Q1

REPORT INFORMATION
  Report Type: Other
  Country: US (occurrence: US)
  Receive Date: 20221006
  Receipt Date: 20230321
  Transmission Date: 20230418
  Serious: Yes (Other)
  Sender: FDA-Public Use
  Company Number: US-DECIPHERA PHARMACEUTICALS LLC-2022US000814

PATIENT
  Sex: Male

DRUGS (2)
  1. QINLOCK [Suspect]
     Active Substance: RIPRETINIB
     Indication: Gastrointestinal stromal tumour
     Dosage: 150 MILLIGRAM, QD
     Route: 048
     Dates: start: 20220921, end: 20221114
  2. QINLOCK [Suspect]
     Active Substance: RIPRETINIB
     Dosage: 150 MILLIGRAM, QD
     Route: 048
     Dates: start: 2022

REACTIONS (27)
  - Tumour compression [Unknown]
  - Arterial thrombosis [Unknown]
  - Ulcer haemorrhage [Unknown]
  - Hepatic neoplasm [Unknown]
  - Haematochezia [Unknown]
  - Abdominal pain upper [Unknown]
  - Skin exfoliation [Unknown]
  - Grip strength decreased [Unknown]
  - Gait disturbance [Unknown]
  - Abdominal discomfort [Unknown]
  - Faeces pale [Unknown]
  - Pain [Unknown]
  - Hypersomnia [Unknown]
  - Adverse event [Unknown]
  - Faeces discoloured [Unknown]
  - Apathy [Unknown]
  - COVID-19 [Unknown]
  - Rash [Unknown]
  - Decreased appetite [Unknown]
  - Asthenia [Unknown]
  - Depression [Unknown]
  - Diarrhoea [Unknown]
  - Constipation [Unknown]
  - Fatigue [Unknown]
  - Weight decreased [Unknown]
  - Palmar-plantar erythrodysaesthesia syndrome [Recovering/Resolving]
  - Anaemia [Unknown]

NARRATIVE: CASE EVENT DATE: 20221201
